FAERS Safety Report 12600145 (Version 2)
Quarter: 2016Q3

REPORT INFORMATION
  Report Type: Spontaneous
  Country: JP (occurrence: JP)
  Receive Date: 20160727
  Receipt Date: 20160907
  Transmission Date: 20161109
  Serious: Yes (Hospitalization)
  Sender: FDA-Public Use
  Company Number: JP-SA-2016SA133585

PATIENT
  Age: 54 Year
  Sex: Female

DRUGS (5)
  1. BEVACIZUMAB [Concomitant]
     Active Substance: BEVACIZUMAB
     Route: 065
  2. IRINOTECAN HYDROCHLORIDE. [Concomitant]
     Active Substance: IRINOTECAN HYDROCHLORIDE
     Route: 041
  3. 5-FU [Concomitant]
     Active Substance: FLUOROURACIL
     Route: 041
  4. ELPLAT [Suspect]
     Active Substance: OXALIPLATIN
     Indication: RECTAL CANCER
     Dosage: I.V. INFUSION SOLUTION
     Route: 041
  5. CALCIUM LEVOFOLINATE [Concomitant]
     Active Substance: LEVOLEUCOVORIN CALCIUM
     Route: 041

REACTIONS (6)
  - Seizure [Unknown]
  - Ventricular fibrillation [Unknown]
  - Neuropathy peripheral [Unknown]
  - Anxiety [Unknown]
  - Hyperventilation [Unknown]
  - Malaise [Unknown]
